FAERS Safety Report 10072210 (Version 1)
Quarter: 2014Q2

REPORT INFORMATION
  Report Type: Spontaneous
  Country: US (occurrence: None)
  Receive Date: 20140410
  Receipt Date: 20140410
  Transmission Date: 20141212
  Serious: Yes (Other)
  Sender: FDA-Public Use
  Company Number: None

PATIENT
  Age: 62 Year
  Sex: Male
  Weight: 63.5 kg

DRUGS (1)
  1. MONTELUKAST SOD [Suspect]
     Indication: BACTERIAL INFECTION
     Route: 048
     Dates: start: 20140319, end: 20140329

REACTIONS (1)
  - Asthma [None]
